FAERS Safety Report 14664314 (Version 6)
Quarter: 2018Q2

REPORT INFORMATION
  Report Type: Report from Study
  Country: DE (occurrence: DE)
  Receive Date: 20180321
  Receipt Date: 20180601
  Transmission Date: 20180711
  Serious: Yes (Life-Threatening, Hospitalization)
  Sender: FDA-Public Use
  Company Number: DE-SA-2018SA069920

PATIENT
  Age: 40 Year
  Sex: Female
  Weight: 70 kg

DRUGS (24)
  1. VIGANTOLETTEN [Concomitant]
     Active Substance: CHOLECALCIFEROL
     Indication: VITAMIN D DEFICIENCY
     Dosage: 1000 IU,QD
     Route: 048
     Dates: start: 20160518
  2. LEVOTHYROXINE SODIUM. [Concomitant]
     Active Substance: LEVOTHYROXINE SODIUM
     Dosage: 125 UG,UNK
     Route: 048
     Dates: start: 20160407
  3. THYBON [Concomitant]
     Dosage: 10 UG,QD
     Route: 048
     Dates: start: 20160508
  4. BERLTHYROX [Concomitant]
     Indication: THYROID DISORDER
     Dosage: 125 UG,UNK
     Route: 065
     Dates: start: 20160518
  5. BERLTHYROX [Concomitant]
     Dosage: 75 UG,UNK
     Route: 065
     Dates: start: 20160511
  6. ALEMTUZUMAB [Suspect]
     Active Substance: ALEMTUZUMAB
     Indication: MULTIPLE SCLEROSIS
     Dosage: 12 MG,UNK
     Route: 041
     Dates: start: 201312, end: 201312
  7. CYANOCOBALAMIN. [Concomitant]
     Active Substance: CYANOCOBALAMIN
     Indication: VITAMIN B12 DEFICIENCY
     Dosage: 1000 UG,UNK
     Route: 065
     Dates: start: 20161202
  8. ESOMEPRAZOLE [Concomitant]
     Active Substance: ESOMEPRAZOLE
     Dosage: 40 MG,UNK
     Route: 048
     Dates: start: 20170511
  9. METHIZOL [Concomitant]
     Active Substance: METHIMAZOLE
     Dosage: 5 MG,QD
     Route: 048
  10. FAMPYRA [Concomitant]
     Active Substance: DALFAMPRIDINE
     Dosage: 20 MG,BID
     Route: 048
     Dates: start: 20180201
  11. FAMPYRA [Concomitant]
     Active Substance: DALFAMPRIDINE
     Dosage: 10 MG,UNK
     Route: 048
     Dates: start: 20161202
  12. LIOTHYRONINE [Concomitant]
     Active Substance: LIOTHYRONINE
     Dosage: UNK UNK,UNK
     Route: 048
     Dates: start: 20160202
  13. NEUREXAN [Concomitant]
     Active Substance: HOMEOPATHICS
     Dosage: UNK UNK,UNK
     Route: 065
     Dates: start: 20170511
  14. LIOTHYRONINE [Concomitant]
     Active Substance: LIOTHYRONINE
     Indication: THYROID DISORDER
     Dosage: UNK UNK,UNK
     Route: 065
     Dates: start: 20160518
  15. METHIZOL [Concomitant]
     Active Substance: METHIMAZOLE
     Dosage: 5 MG,UNK
     Route: 048
     Dates: start: 20160104
  16. LIOTHYRONINE [Concomitant]
     Active Substance: LIOTHYRONINE
     Indication: THYROID DISORDER
     Dosage: 10 UG,QD
     Route: 048
     Dates: start: 20160101
  17. LEVOTHYROXINE SODIUM. [Concomitant]
     Active Substance: LEVOTHYROXINE SODIUM
     Dosage: 75 UG,QD
     Route: 048
     Dates: start: 20160101
  18. FINGOLIMOD. [Concomitant]
     Active Substance: FINGOLIMOD
     Indication: MULTIPLE SCLEROSIS
     Dosage: UNK UNK,UNK
     Route: 065
  19. THYBON [Concomitant]
     Indication: THYROID DISORDER
     Dosage: 20 UG,QD
     Route: 065
     Dates: start: 20160101
  20. THYBON [Concomitant]
     Dosage: 10 UG,QD
     Route: 065
     Dates: start: 20160518
  21. ALEMTUZUMAB [Suspect]
     Active Substance: ALEMTUZUMAB
     Dosage: 12 MG,UNK
     Route: 041
     Dates: start: 20140512, end: 20140516
  22. ALEMTUZUMAB [Suspect]
     Active Substance: ALEMTUZUMAB
     Dosage: 12 MG,UNK
     Route: 041
     Dates: start: 20150518, end: 20150520
  23. BERLTHYROX [Concomitant]
     Dosage: 125 UG,QD
     Route: 048
     Dates: start: 20160407
  24. BERLTHYROX [Concomitant]
     Dosage: 125 UG,QD
     Route: 048

REACTIONS (13)
  - Immune thrombocytopenic purpura [Not Recovered/Not Resolved]
  - Multiple sclerosis relapse [Not Recovered/Not Resolved]
  - Thyroiditis [Recovering/Resolving]
  - Dysphonia [Unknown]
  - Hyperthyroidism [Unknown]
  - Immune thrombocytopenic purpura [Recovered/Resolved]
  - Petechiae [Unknown]
  - Hypothyroidism [Unknown]
  - Mucosal haemorrhage [Unknown]
  - Depression [Unknown]
  - Thrombocytopenia [Not Recovered/Not Resolved]
  - Thyroiditis subacute [Recovering/Resolving]
  - Mood swings [Unknown]

NARRATIVE: CASE EVENT DATE: 20151228
